FAERS Safety Report 7770054-3 (Version None)
Quarter: 2011Q3

REPORT INFORMATION
  Report Type: 
  Country: None (occurrence: None)
  Receive Date: 20110922
  Receipt Date: 20100810
  Transmission Date: 20111222
  Serious: No
  Sender: FDA-Public Use
  Company Number: US-ASTRAZENECA-2010SE37503

PATIENT
  Age: 40 Year
  Sex: Female

DRUGS (4)
  1. LORTAB [Concomitant]
  2. LAMICTAL [Concomitant]
  3. XANAX [Concomitant]
  4. SEROQUEL XR [Suspect]
     Indication: BIPOLAR DISORDER
     Route: 048
     Dates: start: 20100501

REACTIONS (1)
  - ALOPECIA [None]
